FAERS Safety Report 5135248-4 (Version None)
Quarter: 2006Q4

REPORT INFORMATION
  Report Type: 
  Country: None (occurrence: None)
  Receive Date: 20061026
  Receipt Date: 20061012
  Transmission Date: 20070319
  Serious: Yes (Disabling)
  Sender: FDA-Public Use
  Company Number: FR-JNJFOC-20060801925

PATIENT
  Sex: Female

DRUGS (4)
  1. EPITOMAX [Suspect]
     Route: 048
  2. EPITOMAX [Suspect]
     Route: 048
  3. EPITOMAX [Suspect]
     Indication: MIGRAINE PROPHYLAXIS
     Route: 048
  4. RELPAX [Concomitant]
     Indication: MIGRAINE
     Route: 065

REACTIONS (1)
  - CARPAL TUNNEL SYNDROME [None]
